FAERS Safety Report 21330527 (Version 1)
Quarter: 2022Q3

REPORT INFORMATION
  Report Type: Spontaneous
  Country: IT (occurrence: IT)
  Receive Date: 20220913
  Receipt Date: 20220913
  Transmission Date: 20221027
  Serious: Yes (Other)
  Sender: FDA-Public Use
  Company Number: IT-009507513-2209ITA004688

PATIENT
  Age: 54 Year

DRUGS (1)
  1. LETERMOVIR [Suspect]
     Active Substance: LETERMOVIR
     Indication: Prophylaxis
     Dosage: 480 MILLIGRAM, QD
     Route: 048
     Dates: end: 20191026

REACTIONS (7)
  - Cytopenia [Unknown]
  - Graft versus host disease in gastrointestinal tract [Unknown]
  - Pseudomonal sepsis [Unknown]
  - Pneumonia influenzal [Unknown]
  - Interstitial lung disease [Unknown]
  - Salmonella sepsis [Unknown]
  - Product use issue [Unknown]
